FAERS Safety Report 12358738 (Version 1)
Quarter: 2016Q2

REPORT INFORMATION
  Report Type: Spontaneous
  Country: US (occurrence: None)
  Receive Date: 20160511
  Receipt Date: 20160511
  Transmission Date: 20160815
  Serious: No
  Sender: FDA-Public Use
  Company Number: None

PATIENT
  Sex: Female

DRUGS (3)
  1. LANTUS [Suspect]
     Active Substance: INSULIN GLARGINE
  2. METFORMIN [Suspect]
     Active Substance: METFORMIN HYDROCHLORIDE
  3. TOUJEO [Suspect]
     Active Substance: INSULIN GLARGINE

REACTIONS (7)
  - Blood glucose decreased [None]
  - Injection site pain [None]
  - Hypoaesthesia [None]
  - Pain in jaw [None]
  - Diabetes mellitus inadequate control [None]
  - Glycosylated haemoglobin increased [None]
  - Pain in extremity [None]
